FAERS Safety Report 5912370-3 (Version None)
Quarter: 2008Q4

REPORT INFORMATION
  Report Type: 
  Country: None (occurrence: None)
  Receive Date: 20081008
  Receipt Date: 20080929
  Transmission Date: 20090506
  Serious: Yes (Other)
  Sender: FDA-Public Use
  Company Number: US-PURDUE-GBR_2008_0004264

PATIENT
  Age: 57 Year
  Sex: Male

DRUGS (1)
  1. MORPHINE SULFATE CR CAPSULE DAILY 120 MG [Suspect]
     Indication: NECK PAIN
     Dosage: 120 MG, TID
     Route: 065

REACTIONS (8)
  - APNOEA [None]
  - CARDIAC FAILURE [None]
  - CHOKING [None]
  - DYSPNOEA [None]
  - NERVOUS SYSTEM DISORDER [None]
  - SLEEP APNOEA SYNDROME [None]
  - SNORING [None]
  - SOMNOLENCE [None]
